FAERS Safety Report 7904498-3 (Version None)
Quarter: 2011Q4

REPORT INFORMATION
  Report Type: 
  Country: None (occurrence: None)
  Receive Date: 20111109
  Receipt Date: 20111102
  Transmission Date: 20120403
  Serious: Yes (Hospitalization)
  Sender: FDA-Public Use
  Company Number: FR-ASTRAZENECA-2011SE58512

PATIENT
  Age: 46 Year
  Sex: Male

DRUGS (6)
  1. ATARAX [Suspect]
     Indication: ANXIETY
     Route: 048
     Dates: start: 20110830, end: 20110830
  2. OMEPRAZOLE [Suspect]
     Indication: GASTRITIS PROPHYLAXIS
     Route: 048
     Dates: start: 20110825, end: 20110830
  3. IBUPROFEN [Suspect]
     Indication: MUSCULOSKELETAL PAIN
     Route: 048
     Dates: start: 20110825, end: 20110830
  4. TRIAMCINOLONE HEXACETONIDE SUSPENSION/INJ [Suspect]
     Indication: MUSCULOSKELETAL PAIN
     Route: 050
     Dates: start: 20110831, end: 20110831
  5. XYLOCAINE [Suspect]
     Indication: MUSCULOSKELETAL PAIN
     Route: 050
     Dates: start: 20110831, end: 20110831
  6. IOPAMIDOL [Suspect]
     Indication: MUSCULOSKELETAL PAIN
     Route: 050
     Dates: start: 20110831, end: 20110831

REACTIONS (2)
  - EOSINOPHIL COUNT INCREASED [None]
  - TOXIC SKIN ERUPTION [None]
